FAERS Safety Report 7285911-4 (Version None)
Quarter: 2011Q1

REPORT INFORMATION
  Report Type: 
  Country: None (occurrence: None)
  Receive Date: 20110210
  Receipt Date: 20110203
  Transmission Date: 20110831
  Serious: Yes (Hospitalization)
  Sender: FDA-Public Use
  Company Number: NL-MEDIMMUNE-MEDI-0012448

PATIENT
  Sex: Male
  Weight: 4.41 kg

DRUGS (1)
  1. SYNAGIS [Suspect]
     Route: 030
     Dates: start: 20101214, end: 20110111

REACTIONS (3)
  - INFLUENZA [None]
  - SENSE OF OPPRESSION [None]
  - DECREASED APPETITE [None]
